FAERS Safety Report 5999741-4 (Version None)
Quarter: 2008Q4

REPORT INFORMATION
  Report Type: 
  Country: None (occurrence: None)
  Receive Date: 20081211
  Receipt Date: 20081211
  Transmission Date: 20090506
  Serious: Yes (Hospitalization)
  Sender: FDA-Public Use
  Company Number: None

PATIENT
  Sex: Male
  Weight: 91.173 kg

DRUGS (1)
  1. ISOSORBIDE MONONITRATE [Suspect]
     Dosage: 60 MG ERTAB 1 DAILY 17 YRS OR MORE

REACTIONS (8)
  - DIZZINESS [None]
  - DYSPNOEA [None]
  - HEADACHE [None]
  - HEART RATE INCREASED [None]
  - HEART RATE IRREGULAR [None]
  - MUSCULOSKELETAL CHEST PAIN [None]
  - NAUSEA [None]
  - PRODUCT QUALITY ISSUE [None]
